FAERS Safety Report 6656627-X (Version None)
Quarter: 2010Q1

REPORT INFORMATION
  Report Type: 
  Country: None (occurrence: None)
  Receive Date: 20100329
  Receipt Date: 20100318
  Transmission Date: 20100710
  Serious: Yes (Death, Other)
  Sender: FDA-Public Use
  Company Number: JP-PFIZER INC-2010026824

PATIENT
  Age: 46 Year
  Sex: Female
  Weight: 47.5 kg

DRUGS (15)
  1. GABAPEN [Suspect]
     Indication: PAIN
     Dosage: 600 MG, 1X/DAY
     Route: 048
     Dates: start: 20091030
  2. GABAPEN [Suspect]
     Indication: NEURALGIA
     Dosage: 200 MG, 3X/DAY
  3. OXYCONTIN [Suspect]
     Indication: CANCER PAIN
     Dosage: 20 MG, 3X/DAY
     Route: 048
     Dates: start: 20090811
  4. DAI-KENCHU-TO [Concomitant]
     Route: 048
     Dates: start: 20080329
  5. LOXONIN [Concomitant]
     Route: 048
     Dates: start: 20091029
  6. MUCOSTA [Concomitant]
     Route: 048
     Dates: start: 20091029
  7. RINDERON [Concomitant]
     Route: 048
     Dates: start: 20091204
  8. PREMARIN [Concomitant]
     Route: 048
     Dates: start: 20080818
  9. EBRANTIL [Concomitant]
     Route: 048
     Dates: start: 20091126
  10. ADONA [Concomitant]
     Route: 048
     Dates: start: 20091221
  11. TRANSAMIN [Concomitant]
     Dates: start: 20091221
  12. AMITRIPTYLINE HCL [Concomitant]
     Route: 048
     Dates: start: 20091030
  13. AMOBAN [Concomitant]
     Route: 048
     Dates: start: 20080331
  14. VEPESID [Concomitant]
     Route: 048
     Dates: start: 20090820, end: 20100204
  15. CALONAL [Concomitant]
     Route: 048
     Dates: start: 20091112

REACTIONS (6)
  - APNOEA [None]
  - CONVULSION [None]
  - DEPRESSED LEVEL OF CONSCIOUSNESS [None]
  - HYDRONEPHROSIS [None]
  - MALIGNANT NEOPLASM PROGRESSION [None]
  - RENAL IMPAIRMENT [None]
